FAERS Safety Report 10304736 (Version 1)
Quarter: 2014Q3

REPORT INFORMATION
  Report Type: Spontaneous
  Country: US (occurrence: None)
  Receive Date: 20140710
  Receipt Date: 20140710
  Transmission Date: 20150326
  Serious: Yes (Other)
  Sender: FDA-Public Use
  Company Number: ADR-2014-01184

PATIENT
  Sex: Female

DRUGS (3)
  1. BACLOFEN INTRATHECAL [Suspect]
     Active Substance: BACLOFEN
  2. BUPIVACAINE INTRATHECAL [Suspect]
     Active Substance: BUPIVACAINE
  3. MORPHINE [Suspect]
     Active Substance: MORPHINE

REACTIONS (11)
  - Device alarm issue [None]
  - Implant site infection [None]
  - Suture related complication [None]
  - Pain [None]
  - Post-traumatic stress disorder [None]
  - Fracture [None]
  - Memory impairment [None]
  - Abdominal pain [None]
  - Back disorder [None]
  - Medical device pain [None]
  - Brain injury [None]
